FAERS Safety Report 4874521-1 (Version None)
Quarter: 2006Q1

REPORT INFORMATION
  Report Type: 
  Country: None (occurrence: None)
  Receive Date: 20060104
  Receipt Date: 20060104
  Transmission Date: 20060701
  Serious: Yes (Other)
  Sender: FDA-Public Use
  Company Number: None

PATIENT
  Sex: Male
  Weight: 67.1324 kg

DRUGS (10)
  1. QUETIAPINE 25 MG TABLETS ASTRA ZENECA [Suspect]
     Indication: AGGRESSION
     Dosage: 50 MG = 2 TABS QHS PO
     Route: 048
     Dates: start: 20051013, end: 20051027
  2. QUETIAPINE 25 MG TABLETS ASTRA ZENECA [Suspect]
     Indication: INSOMNIA
     Dosage: 50 MG = 2 TABS QHS PO
     Route: 048
     Dates: start: 20051013, end: 20051027
  3. METOPROLOL [Concomitant]
  4. ASPIRIN [Concomitant]
  5. PHENYTOIN SODIUM CAP [Concomitant]
  6. ACETAMINOPHEN [Concomitant]
  7. HYDROCHLOROTHIAZIDE [Concomitant]
  8. CYANOCOBALAMIN [Concomitant]
  9. CLOPIDOGREL BISULFATE [Concomitant]
  10. FELODIPINE [Concomitant]

REACTIONS (1)
  - ELECTROCARDIOGRAM QT CORRECTED INTERVAL PROLONGED [None]
